FAERS Safety Report 6912511-5 (Version None)
Quarter: 2010Q3

REPORT INFORMATION
  Report Type: 
  Country: None (occurrence: None)
  Receive Date: 20100806
  Receipt Date: 20080618
  Transmission Date: 20110219
  Serious: Yes (Hospitalization, Other)
  Sender: FDA-Public Use
  Company Number: US-PFIZER INC-2008052443

PATIENT
  Age: 42 Year
  Sex: Female

DRUGS (2)
  1. DILANTIN [Suspect]
     Dates: end: 20080101
  2. LAMICTAL [Suspect]
     Indication: EPILEPSY
     Dates: end: 20080501

REACTIONS (1)
  - RASH [None]
